FAERS Safety Report 19694014 (Version 1)
Quarter: 2021Q3

REPORT INFORMATION
  Report Type: Spontaneous
  Country: DE (occurrence: DE)
  Receive Date: 20210813
  Receipt Date: 20210813
  Transmission Date: 20211014
  Serious: Yes (Hospitalization, Other)
  Sender: FDA-Public Use
  Company Number: DE-TEVA-2021-DE-1940753

PATIENT
  Age: 63 Year
  Sex: Male
  Weight: 94 kg

DRUGS (9)
  1. DALTEPARIN [Concomitant]
     Active Substance: DALTEPARIN
     Dosage: 5000 IU (INTERNATIONAL UNIT) DAILY; 0?0?1?0 PRE?FILLED SYRINGES
     Route: 058
  2. CALCITRIOL. [Concomitant]
     Active Substance: CALCITRIOL
     Dosage: 2 DOSAGE FORMS DAILY; 0.25 UG, 2?0?0?0
     Route: 048
  3. GEMCITABINE. [Suspect]
     Active Substance: GEMCITABINE
     Dosage: 2400 MG, ACCORDING TO THE SCHEME, SOLUTION FOR INJECTION / INFUSION
     Route: 042
  4. PREGABALIN. [Concomitant]
     Active Substance: PREGABALIN
     Dosage: 150 MILLIGRAM DAILY; 0?0?1?0
     Route: 048
  5. PANTOPRAZOL [Concomitant]
     Active Substance: PANTOPRAZOLE SODIUM
     Dosage: 40 MILLIGRAM DAILY; 1?0?0?0, SUSTAINED?RELEASE TABLETS
     Route: 048
  6. SEMAGLUTID [Concomitant]
     Dosage: 2 MG, ACCORDING TO THE SCHEME, PRE?FILLED SYRINGES
     Route: 058
  7. TORASEMID [Concomitant]
     Active Substance: TORSEMIDE
     Dosage: 2 DOSAGE FORMS DAILY; 10 MG, 2?0?0?0
     Route: 048
  8. CARBOPLATIN. [Suspect]
     Active Substance: CARBOPLATIN
     Dosage: 307 MG, ACCORDING TO THE SCHEME,
     Route: 042
  9. ACETYLSALICYLSAURE [Concomitant]
     Active Substance: ASPIRIN
     Dosage: 10 MILLIGRAM DAILY; 1?0?0?0
     Route: 048

REACTIONS (3)
  - Pyelonephritis [Unknown]
  - C-reactive protein increased [Unknown]
  - Pyrexia [Unknown]
